FAERS Safety Report 6300065-6 (Version None)
Quarter: 2009Q3

REPORT INFORMATION
  Report Type: 
  Country: None (occurrence: None)
  Receive Date: 20090806
  Receipt Date: 20090731
  Transmission Date: 20100115
  Serious: Yes (Hospitalization, Other)
  Sender: FDA-Public Use
  Company Number: FR-GILEAD-2009-0020292

PATIENT
  Age: 34 Year
  Sex: Female

DRUGS (6)
  1. VIREAD [Suspect]
     Indication: HIV INFECTION
     Route: 048
     Dates: end: 20080717
  2. EPZICOM [Concomitant]
     Route: 048
     Dates: start: 20080717
  3. INVIRASE [Concomitant]
     Route: 048
     Dates: start: 20080717, end: 20081122
  4. NORVIR [Concomitant]
     Route: 048
     Dates: start: 20080717
  5. TRIZIVIR [Concomitant]
     Route: 048
     Dates: end: 20080717
  6. KIVEXA [Concomitant]
     Indication: HIV INFECTION
     Route: 048

REACTIONS (6)
  - CHOLESTASIS OF PREGNANCY [None]
  - DRUG EXPOSURE DURING PREGNANCY [None]
  - FATIGUE [None]
  - HEPATOCELLULAR INJURY [None]
  - PREMATURE LABOUR [None]
  - PRURITUS [None]
